FAERS Safety Report 8419374-X (Version None)
Quarter: 2012Q2

REPORT INFORMATION
  Report Type: 
  Country: None (occurrence: None)
  Receive Date: 20120607
  Receipt Date: 20120531
  Transmission Date: 20120825
  Serious: Yes (Other)
  Sender: FDA-Public Use
  Company Number: US-PFIZER INC-2012132380

PATIENT
  Sex: Female

DRUGS (3)
  1. CLONIDINE [Suspect]
     Dosage: UNK
  2. LYRICA [Suspect]
     Dosage: UNK
  3. OXYCONTIN [Suspect]
     Dosage: UNK

REACTIONS (12)
  - PAIN IN EXTREMITY [None]
  - ABDOMINAL PAIN UPPER [None]
  - NIGHTMARE [None]
  - NAUSEA [None]
  - SLEEP DISORDER [None]
  - WITHDRAWAL SYNDROME [None]
  - LOSS OF CONSCIOUSNESS [None]
  - ABDOMINAL PAIN [None]
  - HEADACHE [None]
  - PAIN [None]
  - ANXIETY [None]
  - APHAGIA [None]
